FAERS Safety Report 4265768-6 (Version None)
Quarter: 2004Q1

REPORT INFORMATION
  Report Type: 
  Country: None (occurrence: None)
  Receive Date: 20040106
  Receipt Date: 20031224
  Transmission Date: 20041129
  Serious: Yes (Hospitalization, Other)
  Sender: FDA-Public Use
  Company Number: US-JNJFOC-20031103056

PATIENT
  Sex: Male
  Weight: 72.1219 kg

DRUGS (7)
  1. REMICADE [Suspect]
     Indication: CROHN'S DISEASE
     Dosage: 362.5 MG, INTRAVENOUS
     Route: 042
     Dates: start: 20031104
  2. ENTOCORT (BUDESONIDE) [Concomitant]
  3. NEURONTIN [Concomitant]
  4. HYDROCODONE BITARTRATE [Concomitant]
  5. FOLIC ACID [Concomitant]
  6. PROTONIX [Concomitant]
  7. TRAZADONE (TRAZODONE) [Concomitant]

REACTIONS (19)
  - ANAL FISTULA [None]
  - ANOREXIA [None]
  - ASPIRATION [None]
  - BACK PAIN [None]
  - CHEST PAIN [None]
  - CHEST WALL PAIN [None]
  - DIARRHOEA [None]
  - DRUG SCREEN POSITIVE [None]
  - FLUID INTAKE REDUCED [None]
  - HAEMOPTYSIS [None]
  - HYPERHIDROSIS [None]
  - INFREQUENT BOWEL MOVEMENTS [None]
  - OSTEOMYELITIS [None]
  - RALES [None]
  - RETCHING [None]
  - UPPER RESPIRATORY TRACT INFECTION [None]
  - WEIGHT DECREASED [None]
  - WHEEZING [None]
  - WHITE BLOOD CELL COUNT INCREASED [None]
